FAERS Safety Report 9649300 (Version 2)
Quarter: 2013Q4

REPORT INFORMATION
  Report Type: Spontaneous
  Country: US (occurrence: US)
  Receive Date: 20131028
  Receipt Date: 20131108
  Transmission Date: 20140711
  Serious: No
  Sender: FDA-Public Use
  Company Number: US-009507513-1310USA012698

PATIENT
  Sex: Female
  Weight: 74.83 kg

DRUGS (1)
  1. MIRALAX [Suspect]
     Indication: CONSTIPATION
     Dosage: 17 G, QD
     Route: 048
     Dates: start: 201206

REACTIONS (2)
  - Incorrect drug administration duration [Unknown]
  - Product quality issue [Unknown]
